FAERS Safety Report 11610244 (Version 2)
Quarter: 2015Q4

REPORT INFORMATION
  Report Type: Spontaneous
  Country: US (occurrence: US)
  Receive Date: 20151008
  Receipt Date: 20151014
  Transmission Date: 20160304
  Serious: No
  Sender: FDA-Public Use
  Company Number: US-BRISTOL-MYERS SQUIBB COMPANY-BMS-2015-066691

PATIENT
  Sex: Female
  Weight: 112 kg

DRUGS (1)
  1. ABILIFY [Suspect]
     Active Substance: ARIPIPRAZOLE
     Indication: BIPOLAR DISORDER
     Dosage: 30 MG, QD
     Route: 048

REACTIONS (5)
  - Off label use [Unknown]
  - Hypertension [Recovering/Resolving]
  - Pain [Recovered/Resolved]
  - Dry mouth [Unknown]
  - Dysphagia [Unknown]
